FAERS Safety Report 17226902 (Version 3)
Quarter: 2020Q1

REPORT INFORMATION
  Report Type: Report from Study
  Country: None (occurrence: BR)
  Receive Date: 20200102
  Receipt Date: 20200323
  Transmission Date: 20200409
  Serious: Yes (Disabling)
  Sender: FDA-Public Use
  Company Number: BR-ABBVIE-19K-020-3213716-00

PATIENT
  Age: 67 Year
  Sex: Female
  Weight: 70 kg

DRUGS (5)
  1. CLOPIDOGREL [Concomitant]
     Active Substance: CLOPIDOGREL BISULFATE
     Indication: CARDIOVASCULAR DISORDER
     Dosage: EVERY NIGHT
     Route: 048
  2. DAFLON [Concomitant]
     Indication: PRODUCT USED FOR UNKNOWN INDICATION
     Dosage: 500 IN THE MORNING; 500 AT THE NIGHT
  3. MAGISTRAL [Concomitant]
     Indication: PRODUCT USED FOR UNKNOWN INDICATION
     Dosage: 300MG OF RUTIN + 25MG OF CHLORTHALIDONE
     Route: 048
  4. HUMIRA [Suspect]
     Active Substance: ADALIMUMAB
     Indication: RHEUMATOID ARTHRITIS
     Route: 058
     Dates: start: 2019, end: 202002
  5. HUMIRA [Suspect]
     Active Substance: ADALIMUMAB
     Indication: RHEUMATOID ARTHRITIS
     Route: 058
     Dates: start: 20191007, end: 2019

REACTIONS (47)
  - Mental disorder [Unknown]
  - Musculoskeletal pain [Unknown]
  - Asthenia [Recovered/Resolved]
  - Mobility decreased [Recovering/Resolving]
  - Fall [Recovered/Resolved]
  - Injection site pain [Unknown]
  - Vomiting [Recovered/Resolved]
  - Rash macular [Unknown]
  - Gastric disorder [Unknown]
  - Somnolence [Unknown]
  - Fatigue [Not Recovered/Not Resolved]
  - Wound [Unknown]
  - Drug ineffective [Unknown]
  - Memory impairment [Unknown]
  - Malaise [Unknown]
  - Joint lock [Unknown]
  - Decreased appetite [Unknown]
  - Dysstasia [Unknown]
  - Pain [Not Recovered/Not Resolved]
  - Alopecia [Recovered/Resolved]
  - Musculoskeletal stiffness [Not Recovered/Not Resolved]
  - Hand deformity [Unknown]
  - Hair texture abnormal [Unknown]
  - Fractured coccyx [Recovered/Resolved]
  - Swelling [Recovering/Resolving]
  - Bone pain [Unknown]
  - Arthralgia [Unknown]
  - Fear [Unknown]
  - Limb deformity [Unknown]
  - Shoulder deformity [Unknown]
  - Knee deformity [Unknown]
  - Chromaturia [Recovered/Resolved]
  - Hypophagia [Unknown]
  - Head injury [Not Recovered/Not Resolved]
  - Therapeutic response shortened [Unknown]
  - Subgaleal haematoma [Unknown]
  - Pyrexia [Recovered/Resolved]
  - Elbow deformity [Unknown]
  - Visual impairment [Unknown]
  - Vertigo [Unknown]
  - Muscle spasms [Recovered/Resolved]
  - Muscular weakness [Unknown]
  - Nausea [Recovered/Resolved]
  - Foot deformity [Unknown]
  - Dizziness [Recovered/Resolved]
  - Delirium [Recovered/Resolved]
  - Foot deformity [Recovered/Resolved]

NARRATIVE: CASE EVENT DATE: 2019
